FAERS Safety Report 12678706 (Version 2)
Quarter: 2016Q4

REPORT INFORMATION
  Report Type: Spontaneous
  Country: AR (occurrence: AR)
  Receive Date: 20160823
  Receipt Date: 20161004
  Transmission Date: 20170207
  Serious: Yes (Other)
  Sender: FDA-Public Use
  Company Number: AR-AMGEN-ARGSP2016109065

PATIENT
  Age: 61 Year
  Sex: Female

DRUGS (1)
  1. ENBREL [Suspect]
     Active Substance: ETANERCEPT
     Indication: RHEUMATOID ARTHRITIS
     Dosage: 50 MG, EVERY 15 DAYS
     Route: 065
     Dates: start: 20060914

REACTIONS (2)
  - Bronchospasm [Recovering/Resolving]
  - Asthma [Recovering/Resolving]

NARRATIVE: CASE EVENT DATE: 2014
